FAERS Safety Report 9100065 (Version 1)
Quarter: 2013Q1

REPORT INFORMATION
  Report Type: Spontaneous
  Country: TR (occurrence: TR)
  Receive Date: 20130215
  Receipt Date: 20130215
  Transmission Date: 20140127
  Serious: Yes (Hospitalization)
  Sender: FDA-Public Use
  Company Number: TR-ASTRAZENECA-2013SE09263

PATIENT
  Sex: Female

DRUGS (2)
  1. NEXIUM [Suspect]
     Indication: PROPHYLAXIS AGAINST GASTROINTESTINAL ULCER
     Route: 048
     Dates: start: 2011
  2. NEXIUM [Suspect]
     Indication: ULCER
     Route: 048
     Dates: start: 2011

REACTIONS (2)
  - Osteoporosis [Recovering/Resolving]
  - Hip fracture [Recovering/Resolving]
